FAERS Safety Report 23720028 (Version 1)
Quarter: 2024Q2

REPORT INFORMATION
  Report Type: Spontaneous
  Country: US (occurrence: None)
  Receive Date: 20240408
  Receipt Date: 20240408
  Transmission Date: 20240715
  Serious: No
  Sender: FDA-Public Use
  Company Number: None

PATIENT

DRUGS (1)
  1. SMOFLIPID [Suspect]
     Active Substance: FISH OIL\MEDIUM-CHAIN TRIGLYCERIDES\OLIVE OIL\SOYBEAN OIL

REACTIONS (5)
  - Food allergy [None]
  - Product communication issue [None]
  - Product prescribing error [None]
  - Manufacturing laboratory analytical testing issue [None]
  - Contraindicated product administered [None]
